FAERS Safety Report 13951528 (Version 3)
Quarter: 2022Q4

REPORT INFORMATION
  Report Type: Report from Study
  Country: US (occurrence: US)
  Receive Date: 20170908
  Receipt Date: 20221202
  Transmission Date: 20230113
  Serious: Yes (Other)
  Sender: FDA-Public Use
  Company Number: US-JAZZ-JPI-P-030318

PATIENT
  Sex: Female

DRUGS (9)
  1. XYREM [Suspect]
     Active Substance: SODIUM OXYBATE
     Indication: Narcolepsy
     Dosage: 2.25 GRAM, BID
     Route: 048
     Dates: start: 20130201, end: 201302
  2. XYREM [Suspect]
     Active Substance: SODIUM OXYBATE
     Indication: Cataplexy
     Dosage: SINGLE
     Route: 048
     Dates: start: 201302, end: 20130216
  3. XYREM [Suspect]
     Active Substance: SODIUM OXYBATE
     Indication: Somnolence
     Dosage: 4.5 GRAM, BID
     Route: 048
  4. PROZAC [Concomitant]
     Active Substance: FLUOXETINE HYDROCHLORIDE
     Indication: Product used for unknown indication
  5. WELLBUTRIN [Concomitant]
     Active Substance: BUPROPION HYDROCHLORIDE
     Indication: Product used for unknown indication
  6. SYMBICORT [Concomitant]
     Active Substance: BUDESONIDE\FORMOTEROL FUMARATE DIHYDRATE
     Indication: Product used for unknown indication
     Dosage: UNK
     Dates: start: 20150801
  7. VITAMINS NOS [Concomitant]
     Active Substance: VITAMINS
     Indication: Product used for unknown indication
     Dosage: UNK
     Dates: start: 20160316
  8. MELATONIN [MELATONIN;PYRIDOXINE HYDROCHLORIDE] [Concomitant]
     Indication: Product used for unknown indication
     Dosage: UNK
  9. SKELAXIN [Concomitant]
     Active Substance: METAXALONE
     Indication: Product used for unknown indication
     Dosage: UNK
     Dates: start: 20221001

REACTIONS (34)
  - Atypical pneumonia [Unknown]
  - Influenza [Unknown]
  - Bronchitis [Unknown]
  - Feeling abnormal [Unknown]
  - Emotional disorder [Unknown]
  - Cough [Not Recovered/Not Resolved]
  - Anal incontinence [Unknown]
  - Myalgia [Not Recovered/Not Resolved]
  - Tearfulness [Unknown]
  - Acne [Not Recovered/Not Resolved]
  - Condition aggravated [Unknown]
  - Insomnia [Not Recovered/Not Resolved]
  - Screaming [Recovered/Resolved]
  - Gait disturbance [Not Recovered/Not Resolved]
  - Neck pain [Recovered/Resolved]
  - Musculoskeletal stiffness [Not Recovered/Not Resolved]
  - Crying [Unknown]
  - Apathy [Unknown]
  - Illness [Unknown]
  - Morbid thoughts [Unknown]
  - Hunger [Unknown]
  - Asthenia [Not Recovered/Not Resolved]
  - Sleep terror [Recovered/Resolved]
  - Arthralgia [Recovered/Resolved]
  - Fatigue [Unknown]
  - Nausea [Unknown]
  - Hyperhidrosis [Unknown]
  - Enuresis [Unknown]
  - Disorientation [Recovered/Resolved]
  - Sleep talking [Not Recovered/Not Resolved]
  - Somnambulism [Not Recovered/Not Resolved]
  - Muscle tightness [Unknown]
  - Wrong technique in product usage process [Unknown]
  - Product dose omission issue [Unknown]

NARRATIVE: CASE EVENT DATE: 20130101
